FAERS Safety Report 10475342 (Version 1)
Quarter: 2014Q3

REPORT INFORMATION
  Report Type: Spontaneous
  Country: US (occurrence: None)
  Receive Date: 20140924
  Receipt Date: 20140924
  Transmission Date: 20150326
  Serious: Yes (Other)
  Sender: FDA-Public Use
  Company Number: None

PATIENT
  Age: 54 Year
  Sex: Female
  Weight: 95.26 kg

DRUGS (1)
  1. BELVIQ [Suspect]
     Active Substance: LORCASERIN HYDROCHLORIDE
     Indication: WEIGHT CONTROL
     Route: 048
     Dates: start: 20140818, end: 20140922

REACTIONS (5)
  - Headache [None]
  - Feeling abnormal [None]
  - Serotonin syndrome [None]
  - Panic reaction [None]
  - Thinking abnormal [None]

NARRATIVE: CASE EVENT DATE: 20140922
